FAERS Safety Report 7133916-6 (Version None)
Quarter: 2010Q4

REPORT INFORMATION
  Report Type: 
  Country: None (occurrence: None)
  Receive Date: 20101203
  Receipt Date: 20100723
  Transmission Date: 20110411
  Serious: Yes (Hospitalization, Other)
  Sender: FDA-Public Use
  Company Number: US-BAYER-201021408NA

PATIENT

DRUGS (2)
  1. YASMIN [Suspect]
     Indication: PREMENSTRUAL SYNDROME
     Route: 048
     Dates: start: 20020601, end: 20040430
  2. ZOLOFT [Concomitant]
     Dates: start: 19970101

REACTIONS (4)
  - CHOLECYSTITIS [None]
  - CHOLELITHIASIS [None]
  - DEEP VEIN THROMBOSIS [None]
  - PULMONARY EMBOLISM [None]
